FAERS Safety Report 6893559-6 (Version None)
Quarter: 2010Q3

REPORT INFORMATION
  Report Type: 
  Country: None (occurrence: None)
  Receive Date: 20100731
  Receipt Date: 20091013
  Transmission Date: 20110219
  Serious: No
  Sender: FDA-Public Use
  Company Number: US-PFIZER INC-2009267672

PATIENT
  Sex: Female
  Weight: 62.6 kg

DRUGS (1)
  1. LIPITOR [Suspect]
     Indication: BLOOD CHOLESTEROL INCREASED
     Dosage: UNK
     Dates: start: 20090701, end: 20090801

REACTIONS (3)
  - MYALGIA [None]
  - PAIN IN EXTREMITY [None]
  - RASH [None]
